FAERS Safety Report 7716172-7 (Version None)
Quarter: 2011Q3

REPORT INFORMATION
  Report Type: 
  Country: None (occurrence: None)
  Receive Date: 20110829
  Receipt Date: 20110817
  Transmission Date: 20111222
  Serious: Yes (Other)
  Sender: FDA-Public Use
  Company Number: US-ELI_LILLY_AND_COMPANY-US201106002536

PATIENT
  Sex: Female

DRUGS (3)
  1. ZYPREXA [Suspect]
     Dosage: 2 MG, QD
     Dates: start: 20110401, end: 20110501
  2. ZYPREXA [Suspect]
     Indication: ANXIETY
     Dosage: UNK UNK, PRN
     Dates: start: 20101201, end: 20110401
  3. LORAZEPAM [Concomitant]

REACTIONS (12)
  - PALPITATIONS [None]
  - PERIPHERAL COLDNESS [None]
  - DIZZINESS [None]
  - BLOOD PRESSURE INCREASED [None]
  - FEELING ABNORMAL [None]
  - FEAR [None]
  - INTENTIONAL DRUG MISUSE [None]
  - FEELING COLD [None]
  - SYNCOPE [None]
  - OFF LABEL USE [None]
  - MEDICATION ERROR [None]
  - ANXIETY [None]
